FAERS Safety Report 9516596 (Version 1)
Quarter: 2013Q3

REPORT INFORMATION
  Report Type: Spontaneous
  Country: US (occurrence: US)
  Receive Date: 20130911
  Receipt Date: 20130911
  Transmission Date: 20140515
  Serious: No
  Sender: FDA-Public Use
  Company Number: US-BAYER-2013-108319

PATIENT
  Sex: Female

DRUGS (3)
  1. ESTRADIOL [Suspect]
     Indication: MENOPAUSAL SYMPTOMS
     Dosage: UNK
     Route: 062
     Dates: start: 2003, end: 2003
  2. ESTRADIOL [Suspect]
     Indication: HOT FLUSH
  3. ESTRADIOL [Suspect]
     Indication: MOOD SWINGS

REACTIONS (1)
  - Application site rash [Recovered/Resolved]
